FAERS Safety Report 10227920 (Version 2)
Quarter: 2014Q2

REPORT INFORMATION
  Report Type: Spontaneous
  Country: JP (occurrence: None)
  Receive Date: 20140606
  Receipt Date: 20140624
  Transmission Date: 20141212
  Serious: Yes (Life-Threatening, Hospitalization, Other)
  Sender: FDA-Public Use
  Company Number: 2014-19662

PATIENT
  Age: 76 Year
  Sex: Male

DRUGS (2)
  1. EYLEA (AFLIBERCEPT) INJECTION)AFLIBERCEPT) [Suspect]
     Indication: AGE-RELATED MACULAR DEGENERATION
     Route: 031
     Dates: start: 20130328, end: 20130328
  2. CRAVIT (LEVOFLOXACIN) [Concomitant]

REACTIONS (1)
  - Cerebral haemorrhage [None]
